FAERS Safety Report 16498385 (Version 1)
Quarter: 2019Q2

REPORT INFORMATION
  Report Type: Spontaneous
  Country: US (occurrence: US)
  Receive Date: 20190629
  Receipt Date: 20190629
  Transmission Date: 20190711
  Serious: Yes (Other)
  Sender: FDA-Public Use
  Company Number: US-DRREDDYS-USA/USA/19/0111388

PATIENT
  Age: 46 Year
  Sex: Male

DRUGS (4)
  1. IVABRADINE [Suspect]
     Active Substance: IVABRADINE
     Dosage: HIGHER DOSES
  2. METOPROLOL SUCCINATE. [Suspect]
     Active Substance: METOPROLOL SUCCINATE
     Indication: SINUS NODE DYSFUNCTION
     Dosage: HIGHER DOSES
  3. METOPROLOL SUCCINATE. [Suspect]
     Active Substance: METOPROLOL SUCCINATE
     Dosage: LOW DOSES
  4. IVABRADINE [Suspect]
     Active Substance: IVABRADINE
     Indication: SINUS NODE DYSFUNCTION
     Dosage: LOW DOSES

REACTIONS (3)
  - Fatigue [Recovering/Resolving]
  - Treatment failure [Recovering/Resolving]
  - Dyspnoea [Recovering/Resolving]
